FAERS Safety Report 5273744-X (Version None)
Quarter: 2007Q1

REPORT INFORMATION
  Report Type: 
  Country: None (occurrence: None)
  Receive Date: 20070321
  Receipt Date: 20070321
  Transmission Date: 20070707
  Serious: Yes (Life-Threatening, Hospitalization)
  Sender: FDA-Public Use
  Company Number: None

PATIENT
  Age: 53 Year
  Sex: Female
  Weight: 67.1324 kg

DRUGS (1)
  1. NUVARING [Suspect]
     Indication: MENOPAUSE
     Dosage: 0.120 MG/0.015 MG Q MONTH VAGINAL RING
     Route: 067

REACTIONS (1)
  - PULMONARY EMBOLISM [None]
